FAERS Safety Report 4282339-6 (Version None)
Quarter: 2004Q1

REPORT INFORMATION
  Report Type: 
  Country: None (occurrence: None)
  Receive Date: 20040130
  Receipt Date: 20031204
  Transmission Date: 20041129
  Serious: Yes (Other)
  Sender: FDA-Public Use
  Company Number: WAES 0312USA01010

PATIENT
  Age: 64 Year
  Sex: Male

DRUGS (8)
  1. ASPIRIN [Concomitant]
     Route: 048
  2. ARTIST [Concomitant]
     Route: 048
  3. PEPCID RPD [Suspect]
     Route: 048
     Dates: start: 20031006, end: 20031120
  4. FRANDOL [Concomitant]
  5. PRINIVIL [Concomitant]
     Route: 048
  6. MAGNESIUM OXIDE [Suspect]
     Route: 048
     Dates: start: 20031009, end: 20031120
  7. PANTOSIN [Suspect]
     Route: 048
     Dates: start: 20031009, end: 20031120
  8. MEVALOTIN [Suspect]
     Route: 048
     Dates: start: 20031006, end: 20031120

REACTIONS (2)
  - CORONARY ARTERY DISEASE [None]
  - EOSINOPHILIA [None]
